FAERS Safety Report 5969714-6 (Version None)
Quarter: 2008Q4

REPORT INFORMATION
  Report Type: 
  Country: None (occurrence: None)
  Receive Date: 20081126
  Receipt Date: 20081118
  Transmission Date: 20090506
  Serious: Yes (Other)
  Sender: FDA-Public Use
  Company Number: JP-PFIZER INC-2008086906

PATIENT
  Sex: Female

DRUGS (6)
  1. CELECOX [Suspect]
     Indication: ARTHRALGIA
     Route: 048
     Dates: start: 20080807, end: 20080908
  2. MEDROL [Concomitant]
     Indication: SYSTEMIC LUPUS ERYTHEMATOSUS
     Route: 048
  3. ACINON [Concomitant]
     Indication: REFLUX OESOPHAGITIS
     Route: 048
  4. WARFARIN SODIUM [Concomitant]
     Indication: SYSTEMIC LUPUS ERYTHEMATOSUS
     Route: 048
  5. ALENDRONATE SODIUM [Concomitant]
     Indication: OSTEOPOROSIS
     Route: 048
  6. MOHRUS [Concomitant]
     Indication: ARTHRALGIA
     Dosage: FREQ:OD

REACTIONS (1)
  - DEEP VEIN THROMBOSIS [None]
